FAERS Safety Report 17117672 (Version 1)
Quarter: 2019Q4

REPORT INFORMATION
  Report Type: Spontaneous
  Country: DK (occurrence: DK)
  Receive Date: 20191205
  Receipt Date: 20191205
  Transmission Date: 20200122
  Serious: Yes (Hospitalization)
  Sender: FDA-Public Use
  Company Number: DK-MYLANLABS-2019M1118726

PATIENT
  Age: 65 Year
  Sex: Female

DRUGS (1)
  1. TAMOXIFEN MYLAN [Suspect]
     Active Substance: TAMOXIFEN
     Indication: BREAST CANCER
     Dosage: STYRKE: UKENDT. DOSIS: UKENDT.
     Route: 048
     Dates: start: 1999, end: 2018

REACTIONS (10)
  - Arthralgia [Recovered/Resolved]
  - Early retirement [Unknown]
  - Cataract [Recovered/Resolved]
  - Headache [Recovered/Resolved]
  - Uterine polyp [Recovered/Resolved]
  - Hysterectomy [Recovered/Resolved]
  - Chest discomfort [Recovered/Resolved]
  - Myalgia [Recovered/Resolved]
  - Endometrial hyperplasia [Recovered/Resolved]
  - Angina pectoris [Recovered/Resolved]

NARRATIVE: CASE EVENT DATE: 2011
